FAERS Safety Report 8611011-4 (Version None)
Quarter: 2012Q3

REPORT INFORMATION
  Report Type: 
  Country: None (occurrence: None)
  Receive Date: 20120822
  Receipt Date: 20120817
  Transmission Date: 20120928
  Serious: Yes (Other)
  Sender: FDA-Public Use
  Company Number: US-PFIZER INC-2012203083

PATIENT
  Age: 75 Year
  Sex: Male
  Weight: 71.202 kg

DRUGS (4)
  1. PRISTIQ [Suspect]
     Indication: MYALGIA
     Dosage: 50 MG,DAILY
     Dates: start: 20120811, end: 20120812
  2. PRISTIQ [Suspect]
     Indication: FIBROMYALGIA
  3. SIMVASTATIN [Concomitant]
     Indication: BLOOD CHOLESTEROL ABNORMAL
     Dosage: 40 MG DAILY
  4. AMLODIPINE [Concomitant]
     Indication: BLOOD PRESSURE ABNORMAL
     Dosage: 10 MG DAILY

REACTIONS (5)
  - RETCHING [None]
  - PALLOR [None]
  - CEREBROVASCULAR ACCIDENT [None]
  - INTRAOCULAR PRESSURE INCREASED [None]
  - NAUSEA [None]
